FAERS Safety Report 9548125 (Version 1)
Quarter: 2013Q3

REPORT INFORMATION
  Report Type: Report from Study
  Country: BR (occurrence: BR)
  Receive Date: 20130924
  Receipt Date: 20130924
  Transmission Date: 20140515
  Serious: Yes (Hospitalization, Other)
  Sender: FDA-Public Use
  Company Number: PHHY2013BR105154

PATIENT
  Age: 88 Year
  Sex: Female

DRUGS (8)
  1. FORASEQ [Suspect]
     Dosage: ONCE A DAY
  2. LOPRESSOR [Suspect]
     Dosage: 50 MG, A DAY
  3. OMEPRAZOLE [Suspect]
     Dosage: UNK
  4. SERTRALINE [Suspect]
     Dosage: UNK
  5. LEVOFLOXACIN [Suspect]
     Dosage: UNK
  6. TIOTROPIUM [Suspect]
     Dosage: ONCE A DAY
  7. BROMOPRIDE [Suspect]
  8. CHONDROITIN GLUCOSAMIN [Suspect]
     Dosage: UNK

REACTIONS (14)
  - Cholecystitis acute [Unknown]
  - Chronic obstructive pulmonary disease [Unknown]
  - Dyspnoea [Recovering/Resolving]
  - Productive cough [Recovering/Resolving]
  - Total lung capacity decreased [Unknown]
  - Obstructive airways disorder [Unknown]
  - Prolonged expiration [Unknown]
  - Osteoarthritis [Unknown]
  - Pain [Unknown]
  - Mobility decreased [Unknown]
  - Ventricular extrasystoles [Unknown]
  - Influenza [Recovering/Resolving]
  - Left atrial dilatation [Unknown]
  - Right atrial dilatation [Unknown]
